FAERS Safety Report 20583123 (Version 2)
Quarter: 2022Q2

REPORT INFORMATION
  Report Type: Spontaneous
  Country: JP (occurrence: JP)
  Receive Date: 20220311
  Receipt Date: 20220407
  Transmission Date: 20220721
  Serious: Yes (Other)
  Sender: FDA-Public Use
  Company Number: JP-MYLANLABS-2022M1017052

PATIENT
  Age: 48 Year
  Sex: Female

DRUGS (5)
  1. SODIUM PICOSULFATE [Suspect]
     Active Substance: SODIUM PICOSULFATE
     Indication: Defaecation disorder
     Route: 048
  2. SENNOSIDES [Suspect]
     Active Substance: SENNOSIDES
     Indication: Defaecation disorder
     Route: 048
  3. MAGNESIUM OXIDE [Suspect]
     Active Substance: MAGNESIUM OXIDE
     Indication: Defaecation disorder
     Route: 048
  4. DISTIGMINE BROMIDE [Suspect]
     Active Substance: DISTIGMINE BROMIDE
     Indication: Bladder disorder
     Dosage: 2.5 MILLIGRAM, QD
     Route: 065
  5. DISTIGMINE BROMIDE [Suspect]
     Active Substance: DISTIGMINE BROMIDE
     Dosage: 5 MILLIGRAM, QD
     Route: 065

REACTIONS (3)
  - Cholinergic syndrome [Recovered/Resolved]
  - Renal disorder [Unknown]
  - Overdose [Unknown]
